FAERS Safety Report 8489827 (Version 3)
Quarter: 2013Q3

REPORT INFORMATION
  Report Type: Spontaneous
  Country: US (occurrence: US)
  Receive Date: 20120402
  Receipt Date: 20130708
  Transmission Date: 20140515
  Serious: Yes (Hospitalization)
  Sender: FDA-Public Use
  Company Number: US-AMGEN-USASP2012016794

PATIENT
  Age: 58 Year
  Sex: Female

DRUGS (5)
  1. ENBREL [Suspect]
     Indication: RHEUMATOID ARTHRITIS
     Dosage: 50 MG, QWK
     Route: 065
     Dates: start: 20111109
  2. PLAQUENIL                          /00072602/ [Concomitant]
     Dosage: 200 MG, QD
     Dates: start: 2012
  3. PLAQUENIL                          /00072602/ [Concomitant]
     Dosage: 2 MG, UNK
  4. METHOTREXATE [Concomitant]
     Dosage: 20 MG, QWK
     Dates: start: 2007, end: 201210
  5. METHOTREXATE [Concomitant]
     Dosage: 1 MG, UNK
     Dates: start: 2011

REACTIONS (12)
  - Irritable bowel syndrome [Not Recovered/Not Resolved]
  - Memory impairment [Not Recovered/Not Resolved]
  - Diverticulum [Not Recovered/Not Resolved]
  - Local swelling [Not Recovered/Not Resolved]
  - Asthenia [Not Recovered/Not Resolved]
  - Diarrhoea [Not Recovered/Not Resolved]
  - Renal disorder [Not Recovered/Not Resolved]
  - Pain in extremity [Not Recovered/Not Resolved]
  - Back pain [Not Recovered/Not Resolved]
  - Fall [Recovered/Resolved]
  - Upper limb fracture [Recovered/Resolved]
  - Injection site discomfort [Recovered/Resolved]
